FAERS Safety Report 15561266 (Version 1)
Quarter: 2018Q4

REPORT INFORMATION
  Report Type: Spontaneous
  Country: US (occurrence: US)
  Receive Date: 20181029
  Receipt Date: 20181029
  Transmission Date: 20190205
  Serious: Yes (Death, Hospitalization, Other)
  Sender: FDA-Public Use
  Company Number: US-ACELLA PHARMACEUTICALS, LLC-2058169

PATIENT
  Age: 46 Year
  Sex: Male

DRUGS (3)
  1. GABAPENTIN. [Suspect]
     Active Substance: GABAPENTIN
     Indication: OVERDOSE
  2. NIFEDIPINE. [Suspect]
     Active Substance: NIFEDIPINE
  3. METOPROLOL. [Suspect]
     Active Substance: METOPROLOL

REACTIONS (10)
  - Death [Fatal]
  - Pancreatitis [Fatal]
  - Coma [Fatal]
  - Acute lung injury [Fatal]
  - Hepatotoxicity [Fatal]
  - Metabolic acidosis [Fatal]
  - Acute kidney injury [Fatal]
  - Hypotension [Fatal]
  - Bradycardia [Fatal]
  - Depressed level of consciousness [Fatal]
